FAERS Safety Report 19858189 (Version 1)
Quarter: 2021Q3

REPORT INFORMATION
  Report Type: Spontaneous
  Country: US (occurrence: US)
  Receive Date: 20210921
  Receipt Date: 20210921
  Transmission Date: 20211014
  Serious: No
  Sender: FDA-Public Use
  Company Number: US-TEVA-2021-US-1946436

PATIENT
  Sex: Male

DRUGS (4)
  1. MUPIROCIN. [Suspect]
     Active Substance: MUPIROCIN
     Indication: MASS
  2. MUPIROCIN. [Suspect]
     Active Substance: MUPIROCIN
     Indication: PRECANCEROUS CONDITION
     Route: 065
     Dates: start: 20210819
  3. MUPIROCIN. [Suspect]
     Active Substance: MUPIROCIN
     Indication: SWELLING FACE
  4. MUPIROCIN. [Suspect]
     Active Substance: MUPIROCIN
     Indication: SCAB

REACTIONS (1)
  - Headache [Recovered/Resolved]

NARRATIVE: CASE EVENT DATE: 202108
